FAERS Safety Report 10246589 (Version 1)
Quarter: 2014Q1

REPORT INFORMATION
  Report Type: Spontaneous
  Country: US (occurrence: None)
  Receive Date: 20140306
  Receipt Date: 20140306
  Transmission Date: 20141002
  Serious: Yes (Hospitalization, Other)
  Sender: FDA-Public Use
  Company Number: 163-21880-13082862

PATIENT
  Age: 79 Year
  Sex: Male

DRUGS (17)
  1. REVLIMID (LENALIDOMIDE) (25 MILLIGRAM, CAPSULES) [Suspect]
     Indication: PLASMA CELL MYELOMA
     Route: 048
     Dates: start: 201101
  2. LISINOPRIL (UNKNOWN) [Concomitant]
  3. ACYCLOVIR (ACICLOVIR) (UNKNOWN) [Concomitant]
  4. ASPIRIN (ACETYLSALICYLIC ACID) (UNKNOWN) [Concomitant]
  5. VITAMIN B 12 (UNKNOWN) [Concomitant]
  6. VITAMIN D (ERGOCALCIFEROL) (UNKNOWN) [Concomitant]
  7. VITAMIN B1 (THIAMINE HYDROCHLORIDE) (UNKNOWN) [Concomitant]
  8. PERCOCET (OXYCOCET) (UNKNOWN) [Concomitant]
  9. LOPRESSOR (METOPROLOL TARTRATE) (UNKNOWN) [Concomitant]
  10. NITROSTAT (GLYCERYL TRINITRATE) (TABLETS) [Concomitant]
  11. LEVOFLOXACIN (TABLETS) [Concomitant]
  12. ISOSORBIDE DN (ISOSORBIDE DINITRATE) (TABLETS) [Concomitant]
  13. ALBUTEROL (SALBUTAMOL) (SOLUTION) [Concomitant]
  14. OXYCONTIN (OXYCODONE HYDROCHLORIDE) (TABLETS) [Concomitant]
  15. ZOCOR (SIMVASTATIN) (TABLETS) [Concomitant]
  16. DEXAMETHASONE (TABLETS) [Concomitant]
  17. IMDUR ER (ISOSORBIDE MONONITRATE) (UNKNOWN) [Concomitant]

REACTIONS (5)
  - Thrombophlebitis superficial [None]
  - Staphylococcal infection [None]
  - Cellulitis [None]
  - Pneumonia [None]
  - Constipation [None]
